FAERS Safety Report 10430516 (Version 2)
Quarter: 2014Q3

REPORT INFORMATION
  Report Type: Spontaneous
  Country: DE (occurrence: DE)
  Receive Date: 20140904
  Receipt Date: 20140904
  Transmission Date: 20150326
  Serious: Yes (Other)
  Sender: FDA-Public Use
  Company Number: PHHY2014DE085610

PATIENT
  Age: 17 Year
  Sex: Male

DRUGS (2)
  1. LEPONEX [Suspect]
     Active Substance: CLOZAPINE
     Dosage: 300 MG, QD
     Route: 048
  2. LEPONEX [Suspect]
     Active Substance: CLOZAPINE
     Dosage: UKN (REDUCED DOSE)
     Route: 048

REACTIONS (3)
  - Myocarditis [Unknown]
  - Pericardial effusion [Unknown]
  - Drug administered to patient of inappropriate age [Unknown]
